FAERS Safety Report 15677884 (Version 2)
Quarter: 2018Q4

REPORT INFORMATION
  Report Type: Spontaneous
  Country: US (occurrence: US)
  Receive Date: 20181130
  Receipt Date: 20181206
  Transmission Date: 20190205
  Serious: Yes (Death, Hospitalization)
  Sender: FDA-Public Use
  Company Number: US-OTSUKA-2018_037585

PATIENT
  Age: 60 Year
  Sex: Female

DRUGS (4)
  1. HALDOL [Suspect]
     Active Substance: HALOPERIDOL
     Indication: BIPOLAR DISORDER
  2. ABILIFY MAINTENA [Suspect]
     Active Substance: ARIPIPRAZOLE
     Indication: BIPOLAR DISORDER
  3. ABILIFY MAINTENA [Suspect]
     Active Substance: ARIPIPRAZOLE
     Indication: SCHIZOPHRENIA
     Dosage: 400 MG ONCE MONTHLY
     Route: 030
     Dates: start: 20170309, end: 201804
  4. HALDOL [Suspect]
     Active Substance: HALOPERIDOL
     Indication: SCHIZOPHRENIA
     Dosage: UNK
     Route: 065

REACTIONS (1)
  - Chronic obstructive pulmonary disease [Fatal]

NARRATIVE: CASE EVENT DATE: 201804
